FAERS Safety Report 9772078 (Version 3)
Quarter: 2014Q1

REPORT INFORMATION
  Report Type: Report from Study
  Country: CA (occurrence: CA)
  Receive Date: 20131219
  Receipt Date: 20140214
  Transmission Date: 20141002
  Serious: Yes (Other)
  Sender: FDA-Public Use
  Company Number: CA-JNJFOC-20131208738

PATIENT
  Age: 65 Year
  Sex: Male

DRUGS (8)
  1. REMICADE [Suspect]
     Indication: CROHN^S DISEASE
     Route: 042
     Dates: start: 20090203, end: 20140120
  2. IMURAN [Concomitant]
     Route: 065
  3. MULTIVITAMINS [Concomitant]
     Route: 065
  4. VITAMIN B12 [Concomitant]
     Route: 065
  5. FERROUS GLUCONATE [Concomitant]
     Route: 065
  6. ACETYLSALICYLIC ACID [Concomitant]
     Route: 065
  7. VITAMIN D [Concomitant]
     Route: 065
  8. PRADAXA [Concomitant]
     Route: 065

REACTIONS (1)
  - Megacolon [Recovered/Resolved]
